FAERS Safety Report 21358726 (Version 1)
Quarter: 2022Q3

REPORT INFORMATION
  Report Type: Spontaneous
  Country: IE (occurrence: IE)
  Receive Date: 20220921
  Receipt Date: 20220921
  Transmission Date: 20221026
  Serious: Yes (Hospitalization, Other)
  Sender: FDA-Public Use
  Company Number: IE-MLMSERVICE-20220908-3781128-1

PATIENT
  Age: 76 Year
  Sex: Male

DRUGS (7)
  1. DAPTOMYCIN [Suspect]
     Active Substance: DAPTOMYCIN
     Indication: Rectal abscess
  2. CEFUROXIME [Suspect]
     Active Substance: CEFUROXIME
     Indication: Rectal abscess
  3. METRONIDAZOLE [Suspect]
     Active Substance: METRONIDAZOLE
     Indication: Rectal abscess
  4. LANSOPRAZOLE [Concomitant]
     Active Substance: LANSOPRAZOLE
  5. FINASTERIDE [Concomitant]
     Active Substance: FINASTERIDE
  6. ASPIRIN [Concomitant]
     Active Substance: ASPIRIN
  7. CEFUROXIME [Suspect]
     Active Substance: CEFUROXIME
     Indication: Rectal abscess

REACTIONS (3)
  - Toxic encephalopathy [Recovered/Resolved]
  - Delirium [Recovered/Resolved]
  - Off label use [Unknown]
